FAERS Safety Report 15961360 (Version 1)
Quarter: 2019Q1

REPORT INFORMATION
  Report Type: Spontaneous
  Country: US (occurrence: US)
  Receive Date: 20190123
  Receipt Date: 20190123
  Transmission Date: 20190417
  Serious: No
  Sender: FDA-Public Use
  Company Number: None

PATIENT
  Age: 77 Year
  Sex: Female

DRUGS (13)
  1. ESBRIET [Suspect]
     Active Substance: PIRFENIDONE
     Indication: INTERSTITIAL LUNG DISEASE
     Route: 048
     Dates: start: 20160916
  2. OMEPRAZOLE. [Concomitant]
     Active Substance: OMEPRAZOLE
  3. QUINAPRIL. [Concomitant]
     Active Substance: QUINAPRIL
  4. PRADAXA [Concomitant]
     Active Substance: DABIGATRAN ETEXILATE MESYLATE
  5. QUINAPRIL. [Concomitant]
     Active Substance: QUINAPRIL
  6. DILT-XR [Concomitant]
     Active Substance: DILTIAZEM
  7. PREDNISONE. [Concomitant]
     Active Substance: PREDNISONE
  8. KETOCONAZOLE. [Concomitant]
     Active Substance: KETOCONAZOLE
  9. FUROSEMIDE. [Concomitant]
     Active Substance: FUROSEMIDE
  10. IPRATROPIUM SPR [Concomitant]
  11. DOXEPIN HCL [Concomitant]
     Active Substance: DOXEPIN HYDROCHLORIDE
  12. BENZONATATE. [Concomitant]
     Active Substance: BENZONATATE
  13. OSELTAMIVIR [Concomitant]
     Active Substance: OSELTAMIVIR

REACTIONS (3)
  - Pneumonia [None]
  - Influenza [None]
  - Therapy cessation [None]

NARRATIVE: CASE EVENT DATE: 201901
